FAERS Safety Report 24346670 (Version 3)
Quarter: 2024Q4

REPORT INFORMATION
  Report Type: Spontaneous
  Country: US (occurrence: US)
  Receive Date: 20240921
  Receipt Date: 20241218
  Transmission Date: 20250115
  Serious: No
  Sender: SANOFI AVENTIS
  Company Number: US-SA-2024SA267819

PATIENT
  Age: 15 Year
  Sex: Male

DRUGS (1)
  1. DUPIXENT [Suspect]
     Active Substance: DUPILUMAB
     Indication: Dermatitis atopic
     Dosage: 300 MG, QOW
     Route: 058

REACTIONS (6)
  - Dermatitis atopic [Unknown]
  - Pruritus [Unknown]
  - Dry skin [Unknown]
  - Tinea infection [Unknown]
  - Rash [Unknown]
  - Fungal infection [Unknown]

NARRATIVE: CASE EVENT DATE: 20241001
